FAERS Safety Report 23813008 (Version 2)
Quarter: 2024Q3

REPORT INFORMATION
  Report Type: Spontaneous
  Country: CA (occurrence: CA)
  Receive Date: 20240503
  Receipt Date: 20240702
  Transmission Date: 20241016
  Serious: Yes (Other)
  Sender: AUROBINDO
  Company Number: CA-AUROBINDO-AUR-APL-2024-020167

PATIENT
  Age: 31 Year
  Sex: Female

DRUGS (2)
  1. LACOSAMIDE [Suspect]
     Active Substance: LACOSAMIDE
     Indication: Seizure
     Dosage: 100 MILLIGRAM, TWO TIMES A DAY
     Route: 065
  2. LACOSAMIDE [Suspect]
     Active Substance: LACOSAMIDE
     Indication: Epilepsy
     Dosage: 400 MILLIGRAM, ONCE A DAY
     Route: 048

REACTIONS (4)
  - Dementia [Not Recovered/Not Resolved]
  - Schizophrenia [Not Recovered/Not Resolved]
  - Seizure [Not Recovered/Not Resolved]
  - Insurance issue [Not Recovered/Not Resolved]
